FAERS Safety Report 9732093 (Version 1)
Quarter: 2013Q4

REPORT INFORMATION
  Report Type: Spontaneous
  Country: US (occurrence: None)
  Receive Date: 20131204
  Receipt Date: 20131204
  Transmission Date: 20140711
  Serious: Yes (Death)
  Sender: FDA-Public Use
  Company Number: None

PATIENT
  Age: 78 Year
  Sex: Male
  Weight: 120 kg

DRUGS (1)
  1. ENOXAPARIIN [Suspect]
     Indication: DRUG THERAPY
     Dosage: 1 INJECTION
     Route: 058

REACTIONS (4)
  - Acute respiratory failure [None]
  - International normalised ratio increased [None]
  - Haemothorax [None]
  - Shock haemorrhagic [None]
